FAERS Safety Report 5946748-9 (Version None)
Quarter: 2008Q4

REPORT INFORMATION
  Report Type: 
  Country: None (occurrence: None)
  Receive Date: 20081110
  Receipt Date: 20081029
  Transmission Date: 20090506
  Serious: Yes (Hospitalization, Other)
  Sender: FDA-Public Use
  Company Number: US-BIOGENIDEC-2008BI024163

PATIENT
  Age: 60 Year
  Sex: Female
  Weight: 81 kg

DRUGS (17)
  1. AVONEX [Suspect]
     Indication: MULTIPLE SCLEROSIS
     Route: 030
     Dates: start: 20070601
  2. SPIRIVA [Concomitant]
     Indication: ASTHMA
     Route: 055
  3. ALBUTEROL [Concomitant]
     Indication: ASTHMA
     Route: 055
  4. SYMBICORT INHALER [Concomitant]
     Indication: ASTHMA
     Route: 055
  5. ZYRTEC [Concomitant]
     Indication: ASTHMA
     Route: 048
  6. ASPIRIN [Concomitant]
     Indication: CEREBROVASCULAR ACCIDENT PROPHYLAXIS
     Route: 048
  7. ROPINIROLE [Concomitant]
     Indication: RESTLESS LEGS SYNDROME
     Route: 048
  8. VITAMIN D [Concomitant]
     Indication: PROPHYLAXIS
     Route: 048
  9. LASIX [Concomitant]
     Indication: OEDEMA PERIPHERAL
     Route: 048
  10. TUSSINEX [Concomitant]
     Indication: COUGH
  11. LYRICA [Concomitant]
     Indication: CONVULSION PROPHYLAXIS
     Route: 048
  12. SINGULAIR [Concomitant]
     Indication: ASTHMA
     Route: 048
  13. KEPPRA [Concomitant]
     Indication: CONVULSION PROPHYLAXIS
     Route: 048
  14. ASCORBIC ACID [Concomitant]
     Indication: DRUG USE FOR UNKNOWN INDICATION
     Route: 048
  15. FUMARATE (NOS) [Concomitant]
     Indication: HYPERTENSION
     Route: 048
  16. FELBATOL [Concomitant]
     Indication: CONVULSION PROPHYLAXIS
     Route: 048
  17. NEXIUM [Concomitant]
     Indication: GASTROOESOPHAGEAL REFLUX DISEASE
     Route: 048

REACTIONS (8)
  - BLINDNESS [None]
  - BLOOD GLUCOSE DECREASED [None]
  - CENTRAL NERVOUS SYSTEM INFECTION [None]
  - CONVULSION [None]
  - DYSURIA [None]
  - ESCHERICHIA URINARY TRACT INFECTION [None]
  - HALLUCINATION [None]
  - HYPOTENSION [None]
